FAERS Safety Report 7630260-5 (Version None)
Quarter: 2011Q3

REPORT INFORMATION
  Report Type: 
  Country: None (occurrence: None)
  Receive Date: 20110722
  Receipt Date: 20110719
  Transmission Date: 20111222
  Serious: Yes (Hospitalization)
  Sender: FDA-Public Use
  Company Number: US-VERTEX PHARMACEUTICALS INC.-AE-2011-000539

PATIENT
  Sex: Male

DRUGS (3)
  1. PEG [Concomitant]
     Indication: HEPATITIS C
  2. INCIVEK [Suspect]
     Indication: HEPATITIS C
  3. RBV [Concomitant]
     Indication: HEPATITIS C

REACTIONS (4)
  - BONE INFARCTION [None]
  - DEHYDRATION [None]
  - PYREXIA [None]
  - PAIN IN EXTREMITY [None]
